FAERS Safety Report 18002318 (Version 20)
Quarter: 2022Q3

REPORT INFORMATION
  Report Type: Spontaneous
  Country: GB (occurrence: GB)
  Receive Date: 20200709
  Receipt Date: 20220830
  Transmission Date: 20221026
  Serious: Yes (Hospitalization, Other)
  Sender: FDA-Public Use
  Company Number: GB-BRISTOL-MYERS SQUIBB COMPANY-BMS-2020-053886

PATIENT
  Sex: Male

DRUGS (205)
  1. EFAVIRENZ [Suspect]
     Active Substance: EFAVIRENZ
     Indication: Product used for unknown indication
     Route: 065
  2. EFAVIRENZ [Suspect]
     Active Substance: EFAVIRENZ
     Route: 065
  3. EFAVIRENZ [Suspect]
     Active Substance: EFAVIRENZ
     Route: 065
  4. EFAVIRENZ [Suspect]
     Active Substance: EFAVIRENZ
     Dosage: 300 MILLIGRAM, QD
     Route: 065
  5. EFAVIRENZ [Suspect]
     Active Substance: EFAVIRENZ
     Dosage: 600 MG  QD (CAPSULE)
     Route: 065
  6. EFAVIRENZ [Suspect]
     Active Substance: EFAVIRENZ
     Dosage: 1 DOSAGE FORM, QD
     Route: 065
  7. EFAVIRENZ [Suspect]
     Active Substance: EFAVIRENZ
     Dosage: 600 MILLIGRAM, QD(600 MILLIGRAM, QD, (600 MG, 1D,UNK UNK, 1D,600)
     Route: 065
  8. EFAVIRENZ [Suspect]
     Active Substance: EFAVIRENZ
     Dosage: 1 DOSAGE FORM, QD (STRENGTH 600)
     Route: 065
  9. EFAVIRENZ [Suspect]
     Active Substance: EFAVIRENZ
     Dosage: UNK, ONCE A DAY
     Route: 065
  10. EFAVIRENZ [Suspect]
     Active Substance: EFAVIRENZ
     Dosage: 600 MILLIGRAM, QD(UNK UNK, QD (STRENGTH 600))
     Route: 065
  11. EFAVIRENZ [Suspect]
     Active Substance: EFAVIRENZ
     Dosage: 600 MILLIGRAM, QD(600 MILLIGRAM, QD, 1 DAY)
     Route: 065
  12. EFAVIRENZ [Suspect]
     Active Substance: EFAVIRENZ
     Dosage: QD (STRENGTH 600)
     Route: 065
  13. EFAVIRENZ [Suspect]
     Active Substance: EFAVIRENZ
     Dosage: 600 MILLIGRAM, QD, (600 MG, 1D,UNK UNK, 1D,600)
     Route: 065
  14. EFAVIRENZ [Suspect]
     Active Substance: EFAVIRENZ
     Dosage: 300 MILLIGRAM, QD
     Route: 065
  15. EFAVIRENZ [Suspect]
     Active Substance: EFAVIRENZ
     Dosage: 600 MILLIGRAM, QD(600 MILLIGRAM, QD, (600 MG, 1D,UNK UNK, 1D,600)
     Route: 065
  16. EFAVIRENZ [Suspect]
     Active Substance: EFAVIRENZ
     Dosage: 600 MILLIGRAM, QD(600 MILLIGRAM, QD, (600 MG, 1D,UNK UNK, 1D,600)
     Route: 065
  17. EFAVIRENZ [Suspect]
     Active Substance: EFAVIRENZ
     Route: 065
  18. EFAVIRENZ [Suspect]
     Active Substance: EFAVIRENZ
     Dosage: QD (STRENGTH 600)
     Route: 065
  19. EFAVIRENZ [Suspect]
     Active Substance: EFAVIRENZ
     Dosage: 1 DOSAGE FORM, QD (STRENGTH 600)
     Route: 065
  20. EFAVIRENZ [Suspect]
     Active Substance: EFAVIRENZ
     Route: 065
  21. EFAVIRENZ [Suspect]
     Active Substance: EFAVIRENZ
     Dosage: 1 DOSAGE FORM, QD
     Route: 065
  22. EFAVIRENZ [Suspect]
     Active Substance: EFAVIRENZ
     Dosage: UNK, ONCE A DAY
     Route: 065
  23. EFAVIRENZ [Suspect]
     Active Substance: EFAVIRENZ
     Dosage: 600 MILLIGRAM, QD(UNK UNK, QD (STRENGTH 600)
     Route: 065
  24. EFAVIRENZ [Suspect]
     Active Substance: EFAVIRENZ
     Dosage: STRENGTH 600 (UNSPECIFIED UNIT)
     Route: 065
  25. EFAVIRENZ [Suspect]
     Active Substance: EFAVIRENZ
     Route: 065
  26. EFAVIRENZ [Suspect]
     Active Substance: EFAVIRENZ
     Route: 065
  27. EFAVIRENZ [Suspect]
     Active Substance: EFAVIRENZ
     Route: 065
  28. EFAVIRENZ [Suspect]
     Active Substance: EFAVIRENZ
     Route: 065
  29. ABACAVIR [Suspect]
     Active Substance: ABACAVIR
     Indication: Product used for unknown indication
     Dosage: 300 MG, QD
     Route: 065
  30. ABACAVIR [Suspect]
     Active Substance: ABACAVIR
     Dosage: 600 MG, QD
     Route: 065
  31. ABACAVIR [Suspect]
     Active Substance: ABACAVIR
     Dosage: 300 MILLIGRAM, QD
     Route: 065
  32. ABACAVIR [Suspect]
     Active Substance: ABACAVIR
     Dosage: 600 MILLIGRAM, QD
     Route: 065
  33. ABACAVIR [Suspect]
     Active Substance: ABACAVIR
     Dosage: 300 MILLIGRAM, QD
     Route: 065
  34. ABACAVIR [Suspect]
     Active Substance: ABACAVIR
     Dosage: 600 MILLIGRAM, QD
     Route: 065
  35. ABACAVIR [Suspect]
     Active Substance: ABACAVIR
     Dosage: 600 MILLIGRAM, QD(UNK UNK, 1D,600 CAPSULE )
     Route: 065
  36. ABACAVIR [Suspect]
     Active Substance: ABACAVIR
     Dosage: 1 DOSAGE FORM, QD, ONCE A DAY (STRENGTH 300, OD)
     Route: 065
  37. ABACAVIR [Suspect]
     Active Substance: ABACAVIR
     Dosage: QD (STRENGTH 300, OD)
     Route: 065
  38. ABACAVIR [Suspect]
     Active Substance: ABACAVIR
     Dosage: 300 MILLIGRAM, QD, (300 MG, 1D)
     Route: 065
  39. ABACAVIR [Suspect]
     Active Substance: ABACAVIR
     Dosage: 600 MG, QD (600 MILLIGRAM, ONCE A DAY91D,600 CAPSULE)
     Route: 065
  40. ABACAVIR [Suspect]
     Active Substance: ABACAVIR
     Dosage: UNK
     Route: 065
  41. ABACAVIR [Suspect]
     Active Substance: ABACAVIR
     Dosage: 600 MILLIGRAM, QD
     Route: 065
  42. ABACAVIR [Suspect]
     Active Substance: ABACAVIR
     Dosage: 300 MILLIGRAM, QD,  (STRENGTH 300, OD)
     Route: 065
  43. ABACAVIR [Suspect]
     Active Substance: ABACAVIR
     Dosage: 1 DOSAGE FORM, QD
     Route: 065
  44. ABACAVIR [Suspect]
     Active Substance: ABACAVIR
     Dosage: 300 MILLIGRAM, QD
     Route: 065
  45. ABACAVIR [Suspect]
     Active Substance: ABACAVIR
     Dosage: 600 MILLIGRAM, QD
     Route: 065
  46. ABACAVIR [Suspect]
     Active Substance: ABACAVIR
     Dosage: 300 MILLIGRAM, QD
     Route: 065
  47. ABACAVIR [Suspect]
     Active Substance: ABACAVIR
     Dosage: QD (STRENGTH 300, OD)
     Route: 065
  48. ABACAVIR [Suspect]
     Active Substance: ABACAVIR
     Dosage: 300 MILLIGRAM, QD
     Route: 065
  49. ABACAVIR [Suspect]
     Active Substance: ABACAVIR
     Dosage: UNK
     Route: 065
  50. ABACAVIR [Suspect]
     Active Substance: ABACAVIR
     Dosage: 600 MG, QD (600 MILLIGRAM, ONCE A DAY91D,600 CAPSULE)
     Route: 065
  51. ABACAVIR [Suspect]
     Active Substance: ABACAVIR
     Dosage: 600 MILLIGRAM, QD
     Route: 065
  52. ABACAVIR [Suspect]
     Active Substance: ABACAVIR
     Dosage: 300 MILLIGRAM, QD, (300 MG, 1D)
     Route: 065
  53. ABACAVIR [Suspect]
     Active Substance: ABACAVIR
     Dosage: 1 DOSAGE FORM, QD, ONCE A DAY (STRENGTH 300, OD)
     Route: 065
  54. ABACAVIR [Suspect]
     Active Substance: ABACAVIR
     Dosage: QD (STRENGTH 300, OD)
     Route: 065
  55. ABACAVIR [Suspect]
     Active Substance: ABACAVIR
     Dosage: 600 MILLIGRAM, QD(UNK UNK, 1D,600 CAPSULE )
     Route: 065
  56. ABACAVIR [Suspect]
     Active Substance: ABACAVIR
     Dosage: 600 MILLIGRAM, QD
     Route: 065
  57. ABACAVIR [Suspect]
     Active Substance: ABACAVIR
     Dosage: QD (STRENGTH 300, OD)
     Route: 065
  58. ABACAVIR [Suspect]
     Active Substance: ABACAVIR
     Dosage: 300 MILLIGRAM, QD
     Route: 065
  59. ABACAVIR [Suspect]
     Active Substance: ABACAVIR
     Dosage: 300 MILLIGRAM, QD,  (STRENGTH 300, OD)
     Route: 065
  60. ABACAVIR [Suspect]
     Active Substance: ABACAVIR
     Dosage: 300 MG, QD
     Route: 065
  61. ABACAVIR [Suspect]
     Active Substance: ABACAVIR
     Dosage: 600 MG, QD
     Route: 065
  62. ABACAVIR [Suspect]
     Active Substance: ABACAVIR
     Dosage: 300 MG, QD
     Route: 065
  63. ABACAVIR [Suspect]
     Active Substance: ABACAVIR
     Dosage: 600 MG, QD
     Route: 065
  64. ABACAVIR [Suspect]
     Active Substance: ABACAVIR
     Dosage: 300 MG, QD
     Route: 065
  65. ABACAVIR [Suspect]
     Active Substance: ABACAVIR
     Dosage: 600 MG, QD
     Route: 065
  66. ABACAVIR [Suspect]
     Active Substance: ABACAVIR
     Dosage: 300 MG, QD
     Route: 065
  67. ABACAVIR [Suspect]
     Active Substance: ABACAVIR
     Dosage: 300 MG, QD
     Route: 065
  68. ABACAVIR [Suspect]
     Active Substance: ABACAVIR
     Dosage: 600 MG, QD
     Route: 065
  69. ABACAVIR [Suspect]
     Active Substance: ABACAVIR
     Dosage: 300 MG, QD
     Route: 065
  70. ABACAVIR [Suspect]
     Active Substance: ABACAVIR
     Dosage: 300 MG, QD
     Route: 065
  71. ABACAVIR [Suspect]
     Active Substance: ABACAVIR
     Dosage: 600 MG, QD
     Route: 065
  72. ABACAVIR [Suspect]
     Active Substance: ABACAVIR
     Dosage: 600 MG, QD
     Route: 065
  73. ABACAVIR [Suspect]
     Active Substance: ABACAVIR
     Dosage: 600 MG, QD
     Route: 065
  74. ABACAVIR [Suspect]
     Active Substance: ABACAVIR
     Dosage: 300 MG, QD
     Route: 065
  75. LAMIVUDINE [Suspect]
     Active Substance: LAMIVUDINE
     Indication: Product used for unknown indication
     Dosage: 100 MG, QD
     Route: 065
  76. LAMIVUDINE [Suspect]
     Active Substance: LAMIVUDINE
     Dosage: 100 MG, QD
     Route: 065
  77. LAMIVUDINE [Suspect]
     Active Substance: LAMIVUDINE
     Dosage: 100 MG, QD
     Route: 065
  78. LAMIVUDINE [Suspect]
     Active Substance: LAMIVUDINE
     Dosage: 100 MG, QD
     Route: 065
  79. LAMIVUDINE [Suspect]
     Active Substance: LAMIVUDINE
     Dosage: 100 MG, QD
     Route: 065
  80. LAMIVUDINE [Suspect]
     Active Substance: LAMIVUDINE
     Dosage: 100 MG, QD
     Route: 065
  81. LAMIVUDINE [Suspect]
     Active Substance: LAMIVUDINE
     Dosage: 100 MG, QD
     Route: 065
  82. LAMIVUDINE [Suspect]
     Active Substance: LAMIVUDINE
     Dosage: 100 MG, QD
     Route: 065
  83. LAMIVUDINE [Suspect]
     Active Substance: LAMIVUDINE
     Dosage: 100 MG, QD
     Route: 065
  84. LAMIVUDINE [Suspect]
     Active Substance: LAMIVUDINE
     Dosage: 100 MG, QD
     Route: 065
  85. LAMIVUDINE [Suspect]
     Active Substance: LAMIVUDINE
     Dosage: 100 MG, QD
     Route: 065
  86. LAMIVUDINE [Suspect]
     Active Substance: LAMIVUDINE
     Route: 065
  87. LAMIVUDINE [Suspect]
     Active Substance: LAMIVUDINE
     Route: 065
  88. LAMIVUDINE [Suspect]
     Active Substance: LAMIVUDINE
     Route: 065
  89. LAMIVUDINE [Suspect]
     Active Substance: LAMIVUDINE
     Route: 065
  90. LAMIVUDINE [Suspect]
     Active Substance: LAMIVUDINE
     Route: 065
  91. LAMIVUDINE [Suspect]
     Active Substance: LAMIVUDINE
     Dosage: 600 MILLIGRAM, QD
     Route: 065
  92. LAMIVUDINE [Suspect]
     Active Substance: LAMIVUDINE
     Dosage: UNK UNK, QD (STRENGTH 300, OD 1 1 D 300MG) , UNIT DOSE : 300 MG
     Route: 065
  93. LAMIVUDINE [Suspect]
     Active Substance: LAMIVUDINE
     Dosage: 100 MILLIGRAM, QD (STRENGTH 100 OD)
     Route: 065
  94. LAMIVUDINE [Suspect]
     Active Substance: LAMIVUDINE
     Dosage: 300 MG, QD
     Route: 065
  95. LAMIVUDINE [Suspect]
     Active Substance: LAMIVUDINE
     Dosage: 600 MILLIGRAM, QD
     Route: 065
  96. LAMIVUDINE [Suspect]
     Active Substance: LAMIVUDINE
     Dosage: 300 MILLIGRAM, QD (STRENGTH 300 OD)
     Route: 065
  97. LAMIVUDINE [Suspect]
     Active Substance: LAMIVUDINE
     Dosage: UNK, QD (ONCE A DAY)
     Route: 065
  98. LAMIVUDINE [Suspect]
     Active Substance: LAMIVUDINE
     Dosage: 100 MILLIGRAM, QD
     Route: 065
  99. LAMIVUDINE [Suspect]
     Active Substance: LAMIVUDINE
     Dosage: 300 MG, QD
     Route: 065
  100. LAMIVUDINE [Suspect]
     Active Substance: LAMIVUDINE
     Dosage: 300 MG, QD (STRENGTH 300)
     Route: 065
  101. LAMIVUDINE [Suspect]
     Active Substance: LAMIVUDINE
     Dosage: 600 MG, QD
     Route: 065
  102. LAMIVUDINE [Suspect]
     Active Substance: LAMIVUDINE
     Dosage: 100 MILLIGRAM, QD (STRENGTH 100 OD)
     Route: 065
  103. LAMIVUDINE [Suspect]
     Active Substance: LAMIVUDINE
     Dosage: 100 MILLIGRAM, QD, ONCE A DAY
     Route: 065
  104. LAMIVUDINE [Suspect]
     Active Substance: LAMIVUDINE
     Dosage: 100 MILLIGRAM, QD
     Route: 065
  105. LAMIVUDINE [Suspect]
     Active Substance: LAMIVUDINE
     Dosage: QD (ONCE A DAY)
     Route: 065
  106. LAMIVUDINE [Suspect]
     Active Substance: LAMIVUDINE
     Dosage: 300 MILLIGRAM, QD, (STRENGTH 300, OD 1 1 D 300MG)
     Route: 065
  107. LAMIVUDINE [Suspect]
     Active Substance: LAMIVUDINE
     Dosage: 300 MILLIGRAM, QD
     Route: 065
  108. LAMIVUDINE [Suspect]
     Active Substance: LAMIVUDINE
     Dosage: 100 MILLIGRAM, QD, (STRENGTH 100 OD)
     Route: 065
  109. LAMIVUDINE [Suspect]
     Active Substance: LAMIVUDINE
     Dosage: 100 MILLIGRAM, QD, (STRENGTH 100, OD)
     Route: 065
  110. LAMIVUDINE [Suspect]
     Active Substance: LAMIVUDINE
     Dosage: 300 MILLIGRAM, QD
     Route: 065
  111. LAMIVUDINE [Suspect]
     Active Substance: LAMIVUDINE
     Dosage: 100 MILLIGRAM, QD
     Route: 065
  112. LAMIVUDINE [Suspect]
     Active Substance: LAMIVUDINE
     Dosage: 600 MILLIGRAM, QD
     Route: 065
  113. LAMIVUDINE [Suspect]
     Active Substance: LAMIVUDINE
     Dosage: 300 MILLIGRAM, QD(300 MILLIGRAM, QD (STRENGTH 100 OD))
     Route: 065
  114. LAMIVUDINE [Suspect]
     Active Substance: LAMIVUDINE
     Dosage: UNK, QD (STRENGTH 100 OD)
     Route: 065
  115. LAMIVUDINE [Suspect]
     Active Substance: LAMIVUDINE
     Dosage: 100 MILLIGRAM, QD(100 MILLIGRAM, QD)
     Route: 065
  116. LAMIVUDINE [Suspect]
     Active Substance: LAMIVUDINE
     Dosage: 100 MILLIGRAM, QD, (STRENGTH 100, OD)
     Route: 065
  117. LAMIVUDINE [Suspect]
     Active Substance: LAMIVUDINE
     Dosage: UNK, QD (STRENGTH 100 OD)
     Route: 065
  118. LAMIVUDINE [Suspect]
     Active Substance: LAMIVUDINE
     Dosage: 300 MILLIGRAM, QD, (STRENGTH 300, OD 1 1 D 300MG)
     Route: 065
  119. LAMIVUDINE [Suspect]
     Active Substance: LAMIVUDINE
     Dosage: QD (ONCE A DAY)
     Route: 065
  120. LAMIVUDINE [Suspect]
     Active Substance: LAMIVUDINE
     Dosage: 300 MILLIGRAM, QD(300 MILLIGRAM, QD (STRENGTH 100 OD))
     Route: 065
  121. LAMIVUDINE [Suspect]
     Active Substance: LAMIVUDINE
     Dosage: 100 MILLIGRAM, QD, (STRENGTH 100 OD)
     Route: 065
  122. LAMIVUDINE [Suspect]
     Active Substance: LAMIVUDINE
     Dosage: 100 MILLIGRAM, QD(100 MILLIGRAM, QD)
     Route: 065
  123. LAMIVUDINE [Suspect]
     Active Substance: LAMIVUDINE
     Dosage: 300 MILLIGRAM, QD
     Route: 065
  124. LAMIVUDINE [Suspect]
     Active Substance: LAMIVUDINE
     Dosage: 600 MILLIGRAM, QD
     Route: 065
  125. LAMIVUDINE [Suspect]
     Active Substance: LAMIVUDINE
     Dosage: 100 MILLIGRAM, QD, ONCE A DAY
     Route: 065
  126. LAMIVUDINE [Suspect]
     Active Substance: LAMIVUDINE
     Dosage: 100 MG, QD
     Route: 065
  127. LAMIVUDINE [Suspect]
     Active Substance: LAMIVUDINE
     Dosage: 100 MG, QD
     Route: 065
  128. LAMIVUDINE [Suspect]
     Active Substance: LAMIVUDINE
     Dosage: 100 MG, QD
     Route: 065
  129. LAMIVUDINE [Suspect]
     Active Substance: LAMIVUDINE
     Dosage: 100 MG, QD
     Route: 065
  130. LAMIVUDINE [Suspect]
     Active Substance: LAMIVUDINE
     Dosage: 100 MG, QD
     Route: 065
  131. LAMIVUDINE [Suspect]
     Active Substance: LAMIVUDINE
     Dosage: 100 MG, QD
     Route: 065
  132. LAMIVUDINE [Suspect]
     Active Substance: LAMIVUDINE
     Dosage: UNK, QD
     Route: 065
  133. LAMIVUDINE [Suspect]
     Active Substance: LAMIVUDINE
     Dosage: 100 MG, QD
     Route: 065
  134. LAMIVUDINE [Suspect]
     Active Substance: LAMIVUDINE
     Dosage: 100 MG, QD
     Route: 065
  135. LAMIVUDINE [Suspect]
     Active Substance: LAMIVUDINE
     Dosage: 100 MG, QD
     Route: 065
  136. LAMIVUDINE [Suspect]
     Active Substance: LAMIVUDINE
     Dosage: 100 MG, QD
     Route: 065
  137. LAMIVUDINE [Suspect]
     Active Substance: LAMIVUDINE
     Dosage: 100 MG, QD
     Route: 065
  138. LAMIVUDINE [Suspect]
     Active Substance: LAMIVUDINE
     Dosage: QD (100 OD)
     Route: 065
  139. LAMIVUDINE [Suspect]
     Active Substance: LAMIVUDINE
     Route: 065
  140. LAMIVUDINE [Suspect]
     Active Substance: LAMIVUDINE
     Route: 065
  141. LAMIVUDINE [Suspect]
     Active Substance: LAMIVUDINE
     Route: 065
  142. LAMIVUDINE [Suspect]
     Active Substance: LAMIVUDINE
     Route: 065
  143. LAMIVUDINE [Suspect]
     Active Substance: LAMIVUDINE
     Route: 065
  144. LAMIVUDINE [Suspect]
     Active Substance: LAMIVUDINE
     Route: 065
  145. LAMIVUDINE [Suspect]
     Active Substance: LAMIVUDINE
     Route: 065
  146. LAMIVUDINE [Suspect]
     Active Substance: LAMIVUDINE
     Indication: Product used for unknown indication
     Route: 065
  147. LAMIVUDINE [Suspect]
     Active Substance: LAMIVUDINE
     Route: 065
  148. LAMIVUDINE [Suspect]
     Active Substance: LAMIVUDINE
     Route: 065
  149. LAMIVUDINE [Suspect]
     Active Substance: LAMIVUDINE
     Route: 065
  150. LAMIVUDINE [Suspect]
     Active Substance: LAMIVUDINE
     Dosage: 100 MG, QD (STRENGTH 100, OD)
     Route: 065
  151. LAMIVUDINE [Suspect]
     Active Substance: LAMIVUDINE
     Route: 065
  152. LAMIVUDINE [Suspect]
     Active Substance: LAMIVUDINE
     Route: 065
  153. LAMIVUDINE [Suspect]
     Active Substance: LAMIVUDINE
     Dosage: 100 MILLIGRAM, QD
     Route: 065
  154. LAMIVUDINE [Suspect]
     Active Substance: LAMIVUDINE
     Dosage: 300 MILLIGRAM, QD
     Route: 065
  155. LAMIVUDINE [Suspect]
     Active Substance: LAMIVUDINE
     Dosage: 600 MILLIGRAM, QD (600 MG, QD)
     Route: 065
  156. LAMIVUDINE [Suspect]
     Active Substance: LAMIVUDINE
     Dosage: 100 MILLIGRAM, QD
     Route: 065
  157. LAMIVUDINE [Suspect]
     Active Substance: LAMIVUDINE
     Dosage: 100 MILLIGRAM, QD
     Route: 065
  158. LAMIVUDINE [Suspect]
     Active Substance: LAMIVUDINE
     Dosage: 100 MILLIGRAM, QD, (100 MG, QD)
     Route: 065
  159. LAMIVUDINE [Suspect]
     Active Substance: LAMIVUDINE
     Dosage: UNK UNK, QD, 100 OD
     Route: 065
  160. LAMIVUDINE [Suspect]
     Active Substance: LAMIVUDINE
     Dosage: 300 MILLIGRAM, QD
     Route: 065
  161. LAMIVUDINE [Suspect]
     Active Substance: LAMIVUDINE
     Dosage: UNK, QD, (UNK UNK, QD, 100 OD)
     Route: 065
  162. LAMIVUDINE [Suspect]
     Active Substance: LAMIVUDINE
     Dosage: 100 MILLIGRAM, QD
     Route: 065
  163. LAMIVUDINE [Suspect]
     Active Substance: LAMIVUDINE
     Dosage: 300 MILLIGRAM, QD, (300 MG, QD)
     Route: 065
  164. LAMIVUDINE [Suspect]
     Active Substance: LAMIVUDINE
     Dosage: 100 MILLIGRAM, QD, (1D,100)
     Route: 065
  165. LAMIVUDINE [Suspect]
     Active Substance: LAMIVUDINE
     Dosage: 100 MILLIGRAM, QD
     Route: 065
  166. LAMIVUDINE [Suspect]
     Active Substance: LAMIVUDINE
     Dosage: 300 MILLIGRAM, QD,  (STRENGTH 300, OD 1 1 D 300MG)
     Route: 065
  167. LAMIVUDINE [Suspect]
     Active Substance: LAMIVUDINE
     Dosage: 300 MILLIGRAM, QD, (300 MG, QD)
     Route: 065
  168. LAMIVUDINE [Suspect]
     Active Substance: LAMIVUDINE
     Dosage: 100 MILLIGRAM, QD, (100 MG, 1D, 100 MG, QD (STRENGTH 100, OD))
     Route: 065
  169. LAMIVUDINE [Suspect]
     Active Substance: LAMIVUDINE
     Dosage: 300 MILLIGRAM, QD
     Route: 065
  170. LAMIVUDINE [Suspect]
     Active Substance: LAMIVUDINE
     Dosage: UNK UNK, QD, 100 OD
     Route: 065
  171. LAMIVUDINE [Suspect]
     Active Substance: LAMIVUDINE
     Dosage: 300 MILLIGRAM, QD, (300 MG, QD)
     Route: 065
  172. LAMIVUDINE [Suspect]
     Active Substance: LAMIVUDINE
     Dosage: 100 MILLIGRAM, QD, (1D,100)
     Route: 065
  173. LAMIVUDINE [Suspect]
     Active Substance: LAMIVUDINE
     Dosage: 100 MILLIGRAM, QD, (100 MG, QD)
     Route: 065
  174. LAMIVUDINE [Suspect]
     Active Substance: LAMIVUDINE
     Dosage: 300 MILLIGRAM, QD
     Route: 065
  175. LAMIVUDINE [Suspect]
     Active Substance: LAMIVUDINE
     Dosage: UNK, QD, (UNK UNK, QD, 100 OD)
     Route: 065
  176. LAMIVUDINE [Suspect]
     Active Substance: LAMIVUDINE
     Dosage: 100 MILLIGRAM, QD, (100 MG, 1D, 100 MG, QD (STRENGTH 100, OD))
     Route: 065
  177. LAMIVUDINE [Suspect]
     Active Substance: LAMIVUDINE
     Dosage: 300 MILLIGRAM, QD,  (STRENGTH 300, OD 1 1 D 300MG)
     Route: 065
  178. LAMIVUDINE [Suspect]
     Active Substance: LAMIVUDINE
     Dosage: 300 MILLIGRAM, QD
     Route: 065
  179. LAMIVUDINE [Suspect]
     Active Substance: LAMIVUDINE
     Dosage: 300 MILLIGRAM, QD, (300 MG, QD)
     Route: 065
  180. LAMIVUDINE [Suspect]
     Active Substance: LAMIVUDINE
     Dosage: 300 MG, QD
     Route: 065
  181. LAMIVUDINE [Suspect]
     Active Substance: LAMIVUDINE
     Dosage: 300 MG, QD
     Route: 065
  182. LAMIVUDINE [Suspect]
     Active Substance: LAMIVUDINE
     Dosage: 300 MG, QD
     Route: 065
  183. LAMIVUDINE [Suspect]
     Active Substance: LAMIVUDINE
     Dosage: 300 MG, QD
     Route: 065
  184. LAMIVUDINE [Suspect]
     Active Substance: LAMIVUDINE
     Dosage: 600 MG, QD
     Route: 065
  185. LAMIVUDINE [Suspect]
     Active Substance: LAMIVUDINE
     Dosage: 300 MG, QD
     Route: 065
  186. LAMIVUDINE [Suspect]
     Active Substance: LAMIVUDINE
     Dosage: 600 MG, QD
     Route: 065
  187. LAMIVUDINE [Suspect]
     Active Substance: LAMIVUDINE
     Dosage: 300 MG, QD
     Route: 065
  188. LAMIVUDINE [Suspect]
     Active Substance: LAMIVUDINE
     Dosage: 300 MG, QD
     Route: 065
  189. LAMIVUDINE [Suspect]
     Active Substance: LAMIVUDINE
     Dosage: 300 MG, QD
     Route: 065
  190. ABACAVIR SULFATE [Suspect]
     Active Substance: ABACAVIR SULFATE
     Indication: Product used for unknown indication
     Route: 065
  191. ABACAVIR SULFATE [Suspect]
     Active Substance: ABACAVIR SULFATE
     Route: 065
  192. ABACAVIR SULFATE [Suspect]
     Active Substance: ABACAVIR SULFATE
     Route: 065
  193. ABACAVIR SULFATE [Suspect]
     Active Substance: ABACAVIR SULFATE
     Dosage: 600 MILLIGRAM, QD
     Route: 065
  194. ABACAVIR SULFATE [Suspect]
     Active Substance: ABACAVIR SULFATE
     Dosage: 1 DOSAGE FORM, QD (STRENGTH 300, OD)
     Route: 065
  195. ABACAVIR SULFATE [Suspect]
     Active Substance: ABACAVIR SULFATE
     Dosage: 300 MILLIGRAM, QD ( QD (1D, 300))
     Route: 065
  196. ABACAVIR SULFATE [Suspect]
     Active Substance: ABACAVIR SULFATE
     Dosage: 600 MILLIGRAM, QD
     Route: 065
  197. ABACAVIR SULFATE [Suspect]
     Active Substance: ABACAVIR SULFATE
     Dosage: 300 MILLIGRAM, QD ( QD (1D, 300))
     Route: 065
  198. ABACAVIR SULFATE [Suspect]
     Active Substance: ABACAVIR SULFATE
     Dosage: (UNK UNK, QD, 300, OD)
     Route: 065
  199. ABACAVIR SULFATE [Suspect]
     Active Substance: ABACAVIR SULFATE
     Dosage: 1 DOSAGE FORM, QD (STRENGTH 300, OD)
     Route: 065
  200. ABACAVIR SULFATE [Suspect]
     Active Substance: ABACAVIR SULFATE
     Dosage: 600 MILLIGRAM, QD
     Route: 065
  201. ABACAVIR SULFATE [Suspect]
     Active Substance: ABACAVIR SULFATE
     Dosage: 300 MILLIGRAM, QD ( QD (1D, 300))
     Route: 065
  202. ABACAVIR SULFATE [Suspect]
     Active Substance: ABACAVIR SULFATE
     Dosage: 1 DOSAGE FORM, QD (STRENGTH 300, OD)
     Route: 065
  203. ABACAVIR SULFATE [Suspect]
     Active Substance: ABACAVIR SULFATE
     Dosage: 600 MILLIGRAM, QD
     Route: 065
  204. ABACAVIR SULFATE [Suspect]
     Active Substance: ABACAVIR SULFATE
     Dosage: (UNK UNK, QD, 300, OD)
     Route: 065
  205. ABACAVIR SULFATE [Suspect]
     Active Substance: ABACAVIR SULFATE
     Dosage: 600 MILLIGRAM, QD
     Route: 065

REACTIONS (6)
  - Lung neoplasm malignant [Unknown]
  - Life expectancy shortened [Not Recovered/Not Resolved]
  - Malaise [Unknown]
  - Feeling abnormal [Unknown]
  - Lung cancer metastatic [Unknown]
  - Metastases to central nervous system [Unknown]
